FAERS Safety Report 8435151-8 (Version None)
Quarter: 2012Q2

REPORT INFORMATION
  Report Type: 
  Country: None (occurrence: None)
  Receive Date: 20120614
  Receipt Date: 20120606
  Transmission Date: 20120825
  Serious: Yes (Other)
  Sender: FDA-Public Use
  Company Number: US-BAYER-2012-057403

PATIENT
  Age: 16 Year
  Sex: Female
  Weight: 91.61 kg

DRUGS (6)
  1. PROVERA [Concomitant]
     Dosage: 5 MG, UNK
  2. YASMIN [Suspect]
     Indication: MENSTRUATION IRREGULAR
  3. YASMIN [Suspect]
     Indication: ACNE
  4. DEPO-PROVERA [Concomitant]
     Dosage: 150 MG/ML, UNK
     Route: 030
  5. DROSPIRENONE AND ETHINYL ESTRADIOL [Suspect]
  6. PROAIR HFA [Concomitant]
     Dosage: ONE OR TWO PUFFS EVERY SIX HOURS AS NEEDED

REACTIONS (1)
  - DEEP VEIN THROMBOSIS [None]
